FAERS Safety Report 5498699-4 (Version None)
Quarter: 2007Q4

REPORT INFORMATION
  Report Type: 
  Country: None (occurrence: None)
  Receive Date: 20071026
  Receipt Date: 20071019
  Transmission Date: 20080405
  Serious: Yes (Hospitalization)
  Sender: FDA-Public Use
  Company Number: JP-NOVOPROD-268355

PATIENT
  Sex: Male
  Weight: 50 kg

DRUGS (13)
  1. NOVORAPID 30 MIX CHU [Suspect]
     Indication: INSULIN-REQUIRING TYPE II DIABETES MELLITUS
     Dosage: 30 IU, QD
     Route: 058
     Dates: start: 20060913, end: 20070828
  2. NOVORAPID CHU FLEXPEN [Suspect]
     Dosage: 62 IU, QD
     Route: 058
     Dates: start: 20070828, end: 20070919
  3. NOVOLIN R [Suspect]
     Indication: INSULIN-REQUIRING TYPE II DIABETES MELLITUS
     Dosage: 62 IU, QD
     Route: 058
     Dates: start: 20070920, end: 20071010
  4. GLYBURIDE [Concomitant]
     Indication: INSULIN-REQUIRING TYPE II DIABETES MELLITUS
     Dosage: 10 MG, QD
     Route: 048
     Dates: end: 20060906
  5. GLUFAST [Concomitant]
     Indication: INSULIN-REQUIRING TYPE II DIABETES MELLITUS
     Dosage: 30 MG, QD
     Route: 048
     Dates: start: 20070926, end: 20071010
  6. BASEN [Concomitant]
     Indication: INSULIN-REQUIRING TYPE II DIABETES MELLITUS
     Dosage: .9 MG, QD
     Route: 048
     Dates: start: 20071001
  7. METHYCOBAL                         /00324901/ [Concomitant]
     Indication: NERVE INJURY
     Route: 048
  8. JUVELA N [Concomitant]
     Indication: PERIPHERAL VASCULAR DISORDER
     Route: 048
  9. MAGLAX [Concomitant]
     Indication: CONSTIPATION
     Route: 048
  10. PRORENAL [Concomitant]
     Indication: LUMBAR SPINAL STENOSIS
     Dosage: 15 MG, QD
     Route: 048
  11. NEUROTROPIN                        /00049301/ [Concomitant]
     Dosage: 16 IU, QD
     Route: 048
  12. MELBIN                             /00082702/ [Concomitant]
     Dosage: 750 MG, QD
     Route: 048
     Dates: start: 20071016
  13. AMARYL [Concomitant]
     Dosage: 3 MG, QD
     Route: 048
     Dates: start: 20071017

REACTIONS (2)
  - ANTI-INSULIN ANTIBODY INCREASED [None]
  - BLOOD INSULIN INCREASED [None]
